FAERS Safety Report 6341387-2 (Version None)
Quarter: 2009Q3

REPORT INFORMATION
  Report Type: 
  Country: None (occurrence: None)
  Receive Date: 20090901
  Receipt Date: 20090901
  Transmission Date: 20100115
  Serious: Yes (Other)
  Sender: FDA-Public Use
  Company Number: None

PATIENT
  Age: 33 Year
  Sex: Male
  Weight: 81.1939 kg

DRUGS (2)
  1. SINLESS SMOKE 24MG [Suspect]
     Indication: SMOKING CESSATION THERAPY
     Dosage: 24MG DROPS 6 AT A TIME 9-12 TIMES A DAY PO
     Route: 048
     Dates: start: 20090818, end: 20090826
  2. ELECTRONIC CIGARETTE BY SINLESS SMOKE [Concomitant]

REACTIONS (7)
  - DEPRESSION [None]
  - DEVICE MALFUNCTION [None]
  - HALLUCINATION [None]
  - INITIAL INSOMNIA [None]
  - IRRITABILITY [None]
  - MOOD SWINGS [None]
  - PARANOIA [None]
